FAERS Safety Report 8008595 (Version 2)
Quarter: 2012Q4

REPORT INFORMATION
  Report Type: 
  Country: AU (occurrence: AU)
  Receive Date: 20110624
  Receipt Date: 20121228
  Transmission Date: 20130627
  Serious: Yes (Death, Other)
  Sender: FDA-Public Use
  Company Number: PHHY2011AU53591

PATIENT
  Age: 95 Year
  Sex: Female

DRUGS (5)
  1. CEFTRIAXONE [Suspect]
     Indication: PNEUMONIA
  2. WARFARIN [Concomitant]
  3. PANTOPRAZOLE [Concomitant]
  4. COVERSYL                                /BEL/ [Concomitant]
  5. AUGMENTIN DUO [Concomitant]

REACTIONS (9)
  - Death [Fatal]
  - Dysphagia [Unknown]
  - Heart rate irregular [Unknown]
  - Tongue discolouration [Unknown]
  - Swollen tongue [Unknown]
  - Renal impairment [Unknown]
  - Oedema peripheral [Unknown]
  - Heart rate increased [None]
  - Tongue discolouration [None]
